FAERS Safety Report 6646407-3 (Version None)
Quarter: 2010Q1

REPORT INFORMATION
  Report Type: 
  Country: None (occurrence: None)
  Receive Date: 20100323
  Receipt Date: 20100312
  Transmission Date: 20100710
  Serious: Yes (Hospitalization)
  Sender: FDA-Public Use
  Company Number: DE-BAYER-201019138GPV

PATIENT
  Age: 65 Year
  Sex: Male
  Weight: 83 kg

DRUGS (7)
  1. SORAFENIB [Suspect]
     Indication: HEPATIC NEOPLASM MALIGNANT
     Dosage: TOTAL DAILY DOSE: 800 MG
     Route: 048
     Dates: start: 20100301, end: 20100311
  2. PLACEBO [Suspect]
     Indication: HEPATIC NEOPLASM MALIGNANT
     Dosage: TOTAL DAILY DOSE: 150 MG
     Route: 048
     Dates: start: 20100301, end: 20100311
  3. METOPROLOL RETARD [Concomitant]
     Indication: HYPERTENSION
     Dosage: 50
     Dates: start: 20040101
  4. GLIBENHEXAL [Concomitant]
     Indication: TYPE 2 DIABETES MELLITUS
     Dosage: 5.25
     Dates: start: 19950101
  5. SPIRONOLACTONE [Concomitant]
     Indication: ASCITES
     Dosage: 100
     Dates: start: 20091218
  6. TORSEMIDE [Concomitant]
     Indication: ASCITES
     Dosage: 20
     Dates: start: 20091218
  7. RANIDURA [Concomitant]
     Indication: GASTRITIS
     Dosage: 150
     Dates: start: 20091218

REACTIONS (2)
  - ASCITES [None]
  - PORTAL VEIN THROMBOSIS [None]
